FAERS Safety Report 5464842-6 (Version None)
Quarter: 2007Q3

REPORT INFORMATION
  Report Type: 
  Country: None (occurrence: None)
  Receive Date: 20070921
  Receipt Date: 20070912
  Transmission Date: 20080115
  Serious: Yes (Hospitalization)
  Sender: FDA-Public Use
  Company Number: US-PFIZER INC-2007075977

PATIENT
  Sex: Female

DRUGS (2)
  1. SUTENT [Suspect]
     Indication: NEOPLASM
     Route: 048
     Dates: start: 20070822, end: 20070901
  2. TAXOTERE [Suspect]
     Indication: NEOPLASM
     Route: 042
     Dates: start: 20070822, end: 20070822

REACTIONS (2)
  - PROCTALGIA [None]
  - PYREXIA [None]
